FAERS Safety Report 11081838 (Version 1)
Quarter: 2015Q2

REPORT INFORMATION
  Report Type: Spontaneous
  Country: FR (occurrence: FR)
  Receive Date: 20150501
  Receipt Date: 20150501
  Transmission Date: 20150821
  Serious: Yes (Hospitalization)
  Sender: FDA-Public Use
  Company Number: FR-EMD SERONO-8023079

PATIENT
  Age: 14 Year
  Sex: Male

DRUGS (2)
  1. GONAL-F [Concomitant]
     Active Substance: FOLLITROPIN
     Indication: SECONDARY HYPOGONADISM
     Route: 058
     Dates: start: 201412, end: 201503
  2. OVITRELLE [Suspect]
     Active Substance: CHORIOGONADOTROPIN ALFA
     Indication: SECONDARY HYPOGONADISM
     Route: 058
     Dates: start: 201503, end: 201503

REACTIONS (4)
  - Sodium retention [Recovered/Resolved]
  - Oedema [Recovered/Resolved]
  - Weight increased [Recovered/Resolved]
  - Fluid retention [Recovered/Resolved]

NARRATIVE: CASE EVENT DATE: 201503
